FAERS Safety Report 8560084-6 (Version None)
Quarter: 2012Q3

REPORT INFORMATION
  Report Type: 
  Country: None (occurrence: None)
  Receive Date: 20120723
  Receipt Date: 20120515
  Transmission Date: 20120928
  Serious: Yes (Other)
  Sender: FDA-Public Use
  Company Number: EUS-2012-00237

PATIENT
  Age: 6 Year
  Sex: Female

DRUGS (2)
  1. ASPARAGINASE (UNSPECIFIED) (ASPARAGINASE) [Suspect]
     Indication: ACUTE LYMPHOCYTIC LEUKAEMIA
  2. OCTREOTIDE ACETATE [Suspect]
     Indication: PANCREATITIS ACUTE

REACTIONS (3)
  - PANCREATITIS [None]
  - EPILEPSY [None]
  - DRUG INTERACTION [None]
